FAERS Safety Report 10729657 (Version 1)
Quarter: 2015Q1

REPORT INFORMATION
  Report Type: Spontaneous
  Country: US (occurrence: None)
  Receive Date: 20150122
  Receipt Date: 20150122
  Transmission Date: 20150721
  Serious: Yes (Hospitalization)
  Sender: FDA-Public Use
  Company Number: None

PATIENT
  Sex: Male

DRUGS (1)
  1. PRACTI-PRODUCTS [Suspect]
     Active Substance: UNSPECIFIED INGREDIENT
     Indication: INFLUENZA LIKE ILLNESS
     Route: 042
     Dates: start: 20141231

REACTIONS (18)
  - Headache [None]
  - Vomiting [None]
  - White blood cell count increased [None]
  - Drug dispensing error [None]
  - Body temperature increased [None]
  - Laboratory test abnormal [None]
  - Systemic inflammatory response syndrome [None]
  - Liver function test abnormal [None]
  - Chills [None]
  - Disseminated intravascular coagulation [None]
  - Malaise [None]
  - Physical product label issue [None]
  - Fatigue [None]
  - Back pain [None]
  - Infusion related reaction [None]
  - Product contamination physical [None]
  - Wrong drug administered [None]
  - Asthenia [None]
